FAERS Safety Report 5266463-7 (Version None)
Quarter: 2007Q1

REPORT INFORMATION
  Report Type: 
  Country: None (occurrence: None)
  Receive Date: 20070315
  Receipt Date: 20070306
  Transmission Date: 20070707
  Serious: Yes (Death, Other)
  Sender: FDA-Public Use
  Company Number: US-BRISTOL-MYERS SQUIBB COMPANY-13706338

PATIENT
  Age: 34 Year
  Sex: Male

DRUGS (4)
  1. CYCLOPHOSPHAMIDE [Suspect]
  2. DOXORUBICIN HCL [Suspect]
  3. VINCRISTINE SULFATE [Suspect]
  4. PREDNISONE [Suspect]

REACTIONS (3)
  - DISEASE PROGRESSION [None]
  - OESOPHAGEAL PERFORATION [None]
  - SEPSIS [None]
